FAERS Safety Report 6721456-5 (Version None)
Quarter: 2010Q2

REPORT INFORMATION
  Report Type: 
  Country: None (occurrence: None)
  Receive Date: 20100512
  Receipt Date: 20100430
  Transmission Date: 20101027
  Serious: Yes (Other)
  Sender: FDA-Public Use
  Company Number: ES-CELGENEUS-144-20785-10042614

PATIENT

DRUGS (3)
  1. THALIDOMIDE [Suspect]
     Route: 048
     Dates: start: 20081201, end: 20100201
  2. THALIDOMIDE [Suspect]
     Route: 048
     Dates: start: 20100301
  3. THALIDOMIDE [Suspect]
     Route: 048
     Dates: start: 20060412, end: 20080101

REACTIONS (1)
  - PREGNANCY OF PARTNER [None]
